FAERS Safety Report 5186704-4 (Version None)
Quarter: 2006Q4

REPORT INFORMATION
  Report Type: 
  Country: None (occurrence: None)
  Receive Date: 20061213
  Receipt Date: 20061201
  Transmission Date: 20070319
  Serious: Yes (Hospitalization)
  Sender: FDA-Public Use
  Company Number: 2006BI07656

PATIENT
  Age: 40 Year
  Sex: Female

DRUGS (1)
  1. AVONEX [Suspect]
     Indication: MULTIPLE SCLEROSIS

REACTIONS (4)
  - ABASIA [None]
  - ABDOMINAL PAIN UPPER [None]
  - MEDICAL DEVICE COMPLICATION [None]
  - MEDICAL DEVICE IMPLANTATION [None]
